FAERS Safety Report 5227552-6 (Version None)
Quarter: 2007Q1

REPORT INFORMATION
  Report Type: 
  Country: None (occurrence: None)
  Receive Date: 20070202
  Receipt Date: 20070123
  Transmission Date: 20070707
  Serious: Yes (Hospitalization)
  Sender: FDA-Public Use
  Company Number: US-ELI_LILLY_AND_COMPANY-US200610003030

PATIENT
  Age: 73 Year
  Sex: Female
  Weight: 39.909 kg

DRUGS (10)
  1. QUETIAPINE FUMARATE [Concomitant]
     Dosage: UNK MG, UNK
     Dates: start: 20041101
  2. RISPERDAL [Concomitant]
     Dosage: UNK MG, UNK
     Dates: start: 20051011
  3. DIVALPROEX SODIUM [Concomitant]
     Dosage: UNK MG, UNK
     Dates: start: 20050312
  4. SERTRALINE [Concomitant]
     Dosage: UNK MG, UNK
     Dates: start: 20041101
  5. ZYPREXA [Suspect]
     Dosage: 7.5 MG, UNK
     Dates: start: 20041126, end: 20050312
  6. ZYPREXA [Suspect]
     Dosage: 5 MG, UNK
     Dates: start: 20050312, end: 20050319
  7. ZYPREXA [Suspect]
     Dosage: 7.5 MG, UNK
     Dates: start: 20050319, end: 20051011
  8. ZYPREXA [Suspect]
     Dosage: 10 MG, UNK
     Dates: start: 20051011, end: 20051216
  9. ZYPREXA [Suspect]
     Dosage: 7.5 MG, UNK
     Dates: start: 20051216, end: 20060119
  10. ZYPREXA [Suspect]
     Dosage: 5 MG, UNK
     Dates: start: 20060119

REACTIONS (2)
  - CARDIAC OPERATION [None]
  - DIABETES MELLITUS [None]
